FAERS Safety Report 22296442 (Version 1)
Quarter: 2023Q2

REPORT INFORMATION
  Report Type: Spontaneous
  Country: JP (occurrence: JP)
  Receive Date: 20230508
  Receipt Date: 20230508
  Transmission Date: 20230722
  Serious: Yes (Other)
  Sender: FDA-Public Use
  Company Number: JP-APIL-2313736US

PATIENT
  Age: 33 Year
  Sex: Female

DRUGS (3)
  1. ASENAPINE MALEATE [Suspect]
     Active Substance: ASENAPINE MALEATE
     Indication: Schizophrenia
     Dosage: 10 MG/DAY
     Route: 060
     Dates: start: 20230330, end: 20230401
  2. BROMAZEPAM [Concomitant]
     Active Substance: BROMAZEPAM
  3. MAPROTILINE HYDROCHLORIDE [Concomitant]
     Active Substance: MAPROTILINE HYDROCHLORIDE
     Dosage: 10 MG/DAY

REACTIONS (2)
  - Drug eruption [Recovered/Resolved]
  - Pyrexia [Recovered/Resolved]

NARRATIVE: CASE EVENT DATE: 20230401
